FAERS Safety Report 10136922 (Version 1)
Quarter: 2014Q2

REPORT INFORMATION
  Report Type: Spontaneous
  Country: US (occurrence: None)
  Receive Date: 20140428
  Receipt Date: 20140428
  Transmission Date: 20141212
  Serious: No
  Sender: FDA-Public Use
  Company Number: None

PATIENT
  Age: 80 Year
  Sex: Female
  Weight: 52.16 kg

DRUGS (6)
  1. SULFAMETH/TRIMETHOPRIM [Suspect]
  2. CYANOCOBALAMIN [Concomitant]
  3. VITAMIN D-3 [Concomitant]
  4. CALCIUM [Concomitant]
  5. VITAMIN B-6 [Concomitant]
  6. VITAMIN C [Concomitant]

REACTIONS (3)
  - Fatigue [None]
  - Feeling abnormal [None]
  - Fear [None]
